FAERS Safety Report 17593553 (Version 1)
Quarter: 2020Q1

REPORT INFORMATION
  Report Type: Other
  Country: CA (occurrence: CA)
  Receive Date: 20200327
  Receipt Date: 20200327
  Transmission Date: 20200409
  Serious: Yes (Hospitalization)
  Sender: FDA-Public Use
  Company Number: CA-RECORDATI RARE DISEASES-2082071

PATIENT
  Age: 75 Year
  Sex: Female
  Weight: 40.8 kg

DRUGS (1)
  1. SIGNIFOR LAR [Suspect]
     Active Substance: PASIREOTIDE PAMOATE

REACTIONS (1)
  - White blood cell count decreased [None]
